FAERS Safety Report 6297750 (Version 6)
Quarter: 2014Q1

REPORT INFORMATION
  Report Type: Spontaneous
  Country: GB (occurrence: None)
  Receive Date: 20070411
  Receipt Date: 20131230
  Transmission Date: 20141002
  Serious: Yes (Death, Other)
  Sender: FDA-Public Use
  Company Number: 2007-00903

PATIENT
  Age: 61 Year
  Sex: Female
  Weight: 67 kg

DRUGS (11)
  1. VELCADE [Suspect]
     Indication: PLASMA CELL MYELOMA
     Dates: start: 20070220, end: 20070223
  2. SODIUM BICARBONATE [Concomitant]
  3. CALCICHEW-D3 (COLECALCIFEROL, CALCIUM CARBONATE) [Concomitant]
  4. LANSOPRAZOLE [Concomitant]
  5. DOMPERIDONE (DOMPERIDONE) [Concomitant]
  6. ALLOPURINOL [Concomitant]
  7. SANDO K (POTASSIUM CHLORIDE) [Concomitant]
  8. METRONIDAZOLE [Concomitant]
  9. PHOSPHATE-SANDOZ (SODIUM BICARBONATE, POTASSIUM BICARBONATE, SODIUM PHOSPHATE MONOBAS...) [Concomitant]
  10. ONDANSETRON [Concomitant]
  11. DEXAMETHASONE [Concomitant]

REACTIONS (9)
  - Disease progression [None]
  - Renal impairment [None]
  - Cardiac disorder [None]
  - Pulmonary oedema [None]
  - Septic shock [None]
  - Lower respiratory tract infection [None]
  - Cerebrovascular disorder [None]
  - Myocardial infarction [None]
  - Neoplasm malignant [None]
